FAERS Safety Report 16729231 (Version 1)
Quarter: 2019Q3

REPORT INFORMATION
  Report Type: Spontaneous
  Country: CN (occurrence: CN)
  Receive Date: 20190822
  Receipt Date: 20190822
  Transmission Date: 20191005
  Serious: Yes (Other)
  Sender: FDA-Public Use
  Company Number: CN-ASTRAZENECA-2019SF17879

PATIENT
  Age: 28073 Day
  Sex: Male
  Weight: 35 kg

DRUGS (2)
  1. BUDESONIDE. [Suspect]
     Active Substance: BUDESONIDE
     Indication: CHRONIC OBSTRUCTIVE PULMONARY DISEASE
     Route: 055
     Dates: start: 20190805, end: 20190806
  2. COMPOUND IPRATROPIUM BROMIDE SOLUTION FOR INHALATION [Suspect]
     Active Substance: IPRATROPIUM BROMIDE
     Indication: CHRONIC OBSTRUCTIVE PULMONARY DISEASE
     Route: 065
     Dates: start: 20190805, end: 20190806

REACTIONS (2)
  - Atrial fibrillation [Recovering/Resolving]
  - Palpitations [Recovering/Resolving]

NARRATIVE: CASE EVENT DATE: 20190806
